FAERS Safety Report 20611334 (Version 1)
Quarter: 2022Q1

REPORT INFORMATION
  Report Type: Spontaneous
  Country: NL (occurrence: NL)
  Receive Date: 20220318
  Receipt Date: 20220318
  Transmission Date: 20220423
  Serious: Yes (Other)
  Sender: FDA-Public Use
  Company Number: None

PATIENT
  Sex: Female

DRUGS (1)
  1. DICLOFENAC POTASSIUM [Suspect]
     Active Substance: DICLOFENAC POTASSIUM
     Indication: Abdominal pain
     Dosage: UNK UNK, QD ,SOMETIMES EVERY 2 HOURS A TABLET
     Route: 065
     Dates: start: 202203

REACTIONS (1)
  - Duodenal ulcer haemorrhage [Recovering/Resolving]
